FAERS Safety Report 8912038 (Version 2)
Quarter: 2012Q4

REPORT INFORMATION
  Report Type: 
  Country: US (occurrence: US)
  Receive Date: 20121115
  Receipt Date: 20121127
  Transmission Date: 20130627
  Serious: Yes (Hospitalization)
  Sender: FDA-Public Use
  Company Number: US-INCYTE CORPORATION-2012IN002296

PATIENT
  Age: 65 Year
  Sex: Male
  Weight: 63.49 kg

DRUGS (2)
  1. JAKAFI [Suspect]
     Indication: MYELOFIBROSIS
     Dosage: 10 mg, bid
     Route: 048
     Dates: start: 20120213
  2. JAKAFI [Suspect]
     Indication: SPLENOMEGALY

REACTIONS (3)
  - Dehydration [Unknown]
  - Herpes zoster [Unknown]
  - Infection [Unknown]
